FAERS Safety Report 7571899-5 (Version None)
Quarter: 2011Q2

REPORT INFORMATION
  Report Type: 
  Country: None (occurrence: None)
  Receive Date: 20110624
  Receipt Date: 20100824
  Transmission Date: 20111010
  Serious: No
  Sender: FDA-Public Use
  Company Number: A0877671A

PATIENT
  Sex: Male

DRUGS (1)
  1. VERAMYST [Suspect]
     Route: 045

REACTIONS (1)
  - STOMATITIS [None]
